FAERS Safety Report 23759571 (Version 1)
Quarter: 2024Q2

REPORT INFORMATION
  Report Type: Spontaneous
  Country: CN (occurrence: CN)
  Receive Date: 20240418
  Receipt Date: 20240418
  Transmission Date: 20240716
  Serious: Yes (Hospitalization)
  Sender: FDA-Public Use
  Company Number: CN-BEIGENE-BGN-2024-005665

PATIENT

DRUGS (2)
  1. TISLELIZUMAB [Suspect]
     Active Substance: TISLELIZUMAB
     Indication: Ovarian cancer recurrent
     Dosage: 200 MILLIGRAM
     Route: 041
     Dates: start: 20240403
  2. PACLITAXEL [Suspect]
     Active Substance: PACLITAXEL
     Indication: Ovarian cancer recurrent
     Dosage: 200 MILLIGRAM
     Route: 041
     Dates: start: 20240403

REACTIONS (5)
  - Abdominal distension [Recovering/Resolving]
  - Myelosuppression [Recovering/Resolving]
  - Liver function test abnormal [Recovering/Resolving]
  - Nausea [Unknown]
  - Vomiting [Unknown]

NARRATIVE: CASE EVENT DATE: 20240401
